FAERS Safety Report 5676921-9 (Version None)
Quarter: 2008Q1

REPORT INFORMATION
  Report Type: 
  Country: None (occurrence: None)
  Receive Date: 20080324
  Receipt Date: 20080312
  Transmission Date: 20080703
  Serious: Yes (Hospitalization)
  Sender: FDA-Public Use
  Company Number: US-MERCK-0803USA01916

PATIENT
  Age: 61 Year
  Sex: Female

DRUGS (7)
  1. FOSAMAX PLUS D [Suspect]
     Indication: OSTEOPOROSIS
     Route: 048
  2. FOSAMAX PLUS D [Suspect]
     Route: 048
     Dates: start: 20080226
  3. CALCIUM (UNSPECIFIED) [Concomitant]
     Route: 065
  4. VITAMIN D (UNSPECIFIED) [Concomitant]
     Route: 065
  5. MYSOLINE [Concomitant]
     Route: 065
  6. CRESTOR [Concomitant]
     Route: 065
  7. ZETIA [Concomitant]
     Route: 065

REACTIONS (5)
  - INAPPROPRIATE SCHEDULE OF DRUG ADMINISTRATION [None]
  - MUSCULOSKELETAL PAIN [None]
  - PAIN [None]
  - PAIN IN EXTREMITY [None]
  - PELVIC FRACTURE [None]
